FAERS Safety Report 21415646 (Version 1)
Quarter: 2022Q4

REPORT INFORMATION
  Report Type: Spontaneous
  Country: BR (occurrence: BR)
  Receive Date: 20221006
  Receipt Date: 20221006
  Transmission Date: 20230112
  Serious: Yes (Other)
  Sender: FDA-Public Use
  Company Number: BR-CELLTRION INC.-2022BR016027

PATIENT

DRUGS (9)
  1. INFLIXIMAB [Suspect]
     Active Substance: INFLIXIMAB
     Indication: Rheumatoid arthritis
     Dosage: EVERY 8 WEEKS
  2. INFLIXIMAB [Suspect]
     Active Substance: INFLIXIMAB
     Indication: Crohn^s disease
     Dosage: 4 AMPOULES (350 MILLIGRAM), Q4WEEKS
     Route: 042
  3. AZATHIOPRINE [Concomitant]
     Active Substance: AZATHIOPRINE
     Indication: Crohn^s disease
     Dosage: 50 MILLIGRAM 3 TABLETS PER DAY, TID
     Route: 048
     Dates: start: 202206
  4. ENOXAPARIN [Concomitant]
     Active Substance: ENOXAPARIN
     Indication: Hypercoagulation
     Dosage: 40 MILLIGRAM, ONCE A DAY
     Route: 048
     Dates: start: 202206
  5. PREDNISONE [Concomitant]
     Active Substance: PREDNISONE
     Indication: Arthritis
     Dosage: 10 MILLIGRAM, 1 TABLET A DAY
     Route: 048
     Dates: start: 2020
  6. PREDNISONE [Concomitant]
     Active Substance: PREDNISONE
     Dosage: 5 MILLIGRAM, 2 TABLETS A DAY
     Route: 048
  7. SERTRALINE [Concomitant]
     Active Substance: SERTRALINE HYDROCHLORIDE
     Indication: Anxiety
     Dosage: 50 MILLIGRAM, 1 TABLET A DAY
     Route: 048
     Dates: start: 202203
  8. ASPIRIN [Concomitant]
     Active Substance: ASPIRIN
     Indication: Hypercoagulation
     Dosage: 150 MILLIGRAM 1,5 TABLET PER DAY
     Route: 048
     Dates: start: 202206
  9. OGESTAN [COLECALCIFEROL;DOCOSAHEXAENOIC ACID;FOLIC ACID;IODINE] [Concomitant]
     Dosage: 1 TABLET A DAY
     Route: 048
     Dates: start: 202203

REACTIONS (5)
  - Dyspnoea [Recovered/Resolved]
  - Vomiting [Recovered/Resolved]
  - Maternal exposure during pregnancy [Unknown]
  - Product availability issue [Unknown]
  - Off label use [Unknown]
